FAERS Safety Report 17333498 (Version 1)
Quarter: 2020Q1

REPORT INFORMATION
  Report Type: Spontaneous
  Country: PL (occurrence: PL)
  Receive Date: 20200128
  Receipt Date: 20200128
  Transmission Date: 20200409
  Serious: Yes (Death)
  Sender: FDA-Public Use
  Company Number: PL-PURDUE PHARMA-GBR-2020-0074638

PATIENT
  Age: 55 Year
  Sex: Female

DRUGS (9)
  1. PANITUMUMAB [Suspect]
     Active Substance: PANITUMUMAB
     Indication: RECTAL CANCER
     Dosage: UNK
     Route: 065
     Dates: start: 201802, end: 201901
  2. RACECADOTRIL [Concomitant]
     Active Substance: RACECADOTRIL
     Indication: DIARRHOEA
     Dates: start: 2018
  3. MORPHINE SULFATE. [Suspect]
     Active Substance: MORPHINE SULFATE
     Indication: DIARRHOEA
     Dosage: UNK
     Route: 065
     Dates: start: 2018
  4. LOPERAMIDE [Concomitant]
     Active Substance: LOPERAMIDE
     Indication: DIARRHOEA
     Dates: start: 2018
  5. FLUOROURACIL. [Suspect]
     Active Substance: FLUOROURACIL
     Indication: RECTAL CANCER
     Dosage: UNK
     Route: 065
     Dates: start: 201802, end: 201901
  6. OXALIPLATIN. [Suspect]
     Active Substance: OXALIPLATIN
     Indication: RECTAL CANCER
     Dosage: UNK
     Route: 065
     Dates: start: 201802, end: 201901
  7. FOLINIC ACID [Suspect]
     Active Substance: LEUCOVORIN
     Indication: RECTAL CANCER
     Dosage: FOLFOX
     Route: 065
     Dates: start: 201802, end: 201901
  8. DOXYCYCLINE. [Concomitant]
     Active Substance: DOXYCYCLINE
     Dosage: 100 MG, Q12H
     Dates: start: 2018
  9. UREA. [Concomitant]
     Active Substance: UREA

REACTIONS (5)
  - Neutropenia [Fatal]
  - Polyneuropathy [Fatal]
  - Skin atrophy [Fatal]
  - Short-bowel syndrome [Fatal]
  - Off label use [Fatal]

NARRATIVE: CASE EVENT DATE: 2018
